FAERS Safety Report 14538981 (Version 2)
Quarter: 2018Q1

REPORT INFORMATION
  Report Type: Spontaneous
  Country: US (occurrence: US)
  Receive Date: 20180216
  Receipt Date: 20180221
  Transmission Date: 20180509
  Serious: No
  Sender: FDA-Public Use
  Company Number: US-009507513-1802USA007296

PATIENT
  Sex: Female
  Weight: 84.35 kg

DRUGS (3)
  1. TOPAMAX [Concomitant]
     Active Substance: TOPIRAMATE
     Dosage: 100 2X
  2. NEXPLANON [Suspect]
     Active Substance: ETONOGESTREL
     Indication: CONTRACEPTION
     Dosage: 1 ROD, 3 YEARS, LEFT ARM
     Route: 059
     Dates: start: 20171110
  3. ACETAMINOPHEN (+) BUTALBITAL (+) CAFFEINE [Concomitant]
     Dosage: UNK, PRN

REACTIONS (3)
  - Nausea [Unknown]
  - Abdominal discomfort [Unknown]
  - Emotional disorder [Unknown]
